FAERS Safety Report 16978995 (Version 3)
Quarter: 2019Q4

REPORT INFORMATION
  Report Type: Report from Study
  Country: US (occurrence: US)
  Receive Date: 20191031
  Receipt Date: 20191213
  Transmission Date: 20200122
  Serious: Yes (Hospitalization, Other)
  Sender: FDA-Public Use
  Company Number: US-PFIZER INC-2019447989

PATIENT
  Age: 56 Year
  Sex: Female

DRUGS (2)
  1. IBRANCE [Suspect]
     Active Substance: PALBOCICLIB
     Indication: BREAST CANCER
     Dosage: 125 MG, CYCLIC (ONCE DAILY, 21 DAYS ON, 7 DAYS OFF)
     Route: 048
     Dates: start: 201909, end: 20191016
  2. IBRANCE [Suspect]
     Active Substance: PALBOCICLIB
     Dosage: 125 MG, CYCLIC (ONCE DAILY, 21 DAYS ON, 7 DAYS OFF)
     Route: 048
     Dates: start: 201911, end: 20191204

REACTIONS (13)
  - Hyperhidrosis [Recovered/Resolved]
  - Pneumonia [Recovering/Resolving]
  - Fatigue [Unknown]
  - Chills [Recovered/Resolved]
  - Chest pain [Unknown]
  - Cough [Unknown]
  - Pain [Unknown]
  - Vomiting [Recovered/Resolved]
  - Pulmonary embolism [Recovering/Resolving]
  - Decreased appetite [Recovered/Resolved]
  - Pneumothorax [Unknown]
  - Chest discomfort [Unknown]
  - Diarrhoea [Recovered/Resolved]

NARRATIVE: CASE EVENT DATE: 2019
